FAERS Safety Report 24602041 (Version 1)
Quarter: 2024Q4

REPORT INFORMATION
  Report Type: Spontaneous
  Country: CN (occurrence: CN)
  Receive Date: 20241111
  Receipt Date: 20241111
  Transmission Date: 20250115
  Serious: Yes (Other)
  Sender: SANOFI AVENTIS
  Company Number: CN-SA-2024SA323109

PATIENT
  Age: 62 Year
  Sex: Male
  Weight: 65 kg

DRUGS (2)
  1. HYDROCHLOROTHIAZIDE\IRBESARTAN [Suspect]
     Active Substance: HYDROCHLOROTHIAZIDE\IRBESARTAN
     Indication: Hypertension
     Dosage: 150 MG, QD
     Route: 048
     Dates: start: 20241024, end: 20241024
  2. HYDROCHLOROTHIAZIDE\IRBESARTAN [Suspect]
     Active Substance: HYDROCHLOROTHIAZIDE\IRBESARTAN
     Indication: Vasodilatation

REACTIONS (5)
  - Rash erythematous [Recovered/Resolved]
  - Pruritus [Recovered/Resolved]
  - Dizziness [Recovered/Resolved]
  - Nausea [Recovered/Resolved]
  - Vomiting [Recovered/Resolved]

NARRATIVE: CASE EVENT DATE: 20241024
